FAERS Safety Report 18315505 (Version 1)
Quarter: 2020Q3

REPORT INFORMATION
  Report Type: Spontaneous
  Country: ES (occurrence: ES)
  Receive Date: 20200926
  Receipt Date: 20200926
  Transmission Date: 20201103
  Serious: Yes (Other)
  Sender: FDA-Public Use
  Company Number: ES-AMGEN-ESPSP2020151595

PATIENT

DRUGS (2)
  1. ETANERCEPT [Suspect]
     Active Substance: ETANERCEPT
     Indication: EXPOSURE DURING PREGNANCY
     Dosage: UNK
     Route: 064
  2. ADALIMUMAB [Suspect]
     Active Substance: ADALIMUMAB
     Indication: EXPOSURE DURING PREGNANCY
     Dosage: UNK
     Route: 064

REACTIONS (3)
  - Premature baby [Unknown]
  - Foetal growth restriction [Unknown]
  - Foetal exposure during pregnancy [Unknown]
